FAERS Safety Report 4673136-8 (Version None)
Quarter: 2005Q2

REPORT INFORMATION
  Report Type: 
  Country: None (occurrence: None)
  Receive Date: 20050525
  Receipt Date: 20050513
  Transmission Date: 20051028
  Serious: Yes (Death)
  Sender: FDA-Public Use
  Company Number: M-810566

PATIENT
  Age: 44 Year
  Sex: Female

DRUGS (3)
  1. HALDOL [Suspect]
     Route: 049
  2. HALDOL [Suspect]
     Route: 049
  3. HALDOL [Suspect]
     Route: 030

REACTIONS (2)
  - DYSTONIA [None]
  - SUDDEN DEATH [None]
